FAERS Safety Report 5558363-X (Version None)
Quarter: 2007Q4

REPORT INFORMATION
  Report Type: 
  Country: None (occurrence: None)
  Receive Date: 20071214
  Receipt Date: 20071204
  Transmission Date: 20080405
  Serious: Yes (Other)
  Sender: FDA-Public Use
  Company Number: DK-PFIZER INC-2007101756

PATIENT
  Age: 52 Year
  Sex: Male

DRUGS (2)
  1. ETHOSUXIMIDE [Suspect]
     Indication: EPILEPSY
     Route: 048
  2. ETHOSUXIMIDE [Suspect]
     Dosage: DAILY DOSE:750MG
     Route: 048

REACTIONS (2)
  - DIZZINESS [None]
  - TOOTH LOSS [None]
